FAERS Safety Report 20461770 (Version 1)
Quarter: 2022Q1

REPORT INFORMATION
  Report Type: Spontaneous
  Country: US (occurrence: US)
  Receive Date: 20220211
  Receipt Date: 20220211
  Transmission Date: 20220423
  Serious: Yes (Death)
  Sender: FDA-Public Use
  Company Number: US-PERRIGO-22US001942

PATIENT
  Age: 46 Year
  Sex: Female

DRUGS (3)
  1. PSEUDOEPHEDRINE HYDROCHLORIDE [Suspect]
     Active Substance: PSEUDOEPHEDRINE HYDROCHLORIDE
     Indication: Drug abuse
     Dosage: UNKNOWN, UNKNOWN
     Route: 065
  2. BUPRENORPHINE [Suspect]
     Active Substance: BUPRENORPHINE
     Indication: Drug abuse
     Dosage: UNKNOWN, UNKNOWN
     Route: 065
  3. DULOXETINE [Suspect]
     Active Substance: DULOXETINE
     Indication: Drug abuse
     Dosage: UNKNOWN, UNKNOWN
     Route: 065

REACTIONS (1)
  - Exposure to toxic agent [Fatal]

NARRATIVE: CASE EVENT DATE: 20200101
